FAERS Safety Report 9286809 (Version 2)
Quarter: 2013Q4

REPORT INFORMATION
  Report Type: Spontaneous
  Country: IT (occurrence: None)
  Receive Date: 20130509
  Receipt Date: 20131205
  Transmission Date: 20140711
  Serious: Yes (Other)
  Sender: FDA-Public Use
  Company Number: 1699059

PATIENT
  Age: 59 Year
  Sex: Female

DRUGS (3)
  1. DOCETAXEL [Suspect]
     Indication: BREAST CANCER
     Dosage: 175 MG MILLIGRAM(S), CYCLICAL, INTRAVENOUS (NOT OTHERWISE SPECIFIED)
     Route: 042
     Dates: start: 20130423, end: 20130423
  2. ZOFRAN [Concomitant]
  3. RANIDIL [Concomitant]

REACTIONS (5)
  - Retching [None]
  - Flushing [None]
  - Dyspnoea [None]
  - Hyperhidrosis [None]
  - Hypersensitivity [None]
